FAERS Safety Report 9616552 (Version 1)
Quarter: 2013Q4

REPORT INFORMATION
  Report Type: Spontaneous
  Country: US (occurrence: None)
  Receive Date: 20131010
  Receipt Date: 20131010
  Transmission Date: 20140711
  Serious: Yes (Other)
  Sender: FDA-Public Use
  Company Number: None

PATIENT
  Age: 50 Year
  Sex: Female
  Weight: 54.43 kg

DRUGS (1)
  1. MIRVASO, .33% 1 GRAM TO FACE/DAY, GALDERMA [Suspect]
     Indication: ROSACEA
     Dosage: 5 PEA SIZE AMOUNT TO FACE DAIL.
     Route: 061
     Dates: start: 20131007, end: 20131008

REACTIONS (2)
  - Erythema [None]
  - Inflammation [None]
